FAERS Safety Report 10399639 (Version 1)
Quarter: 2014Q3

REPORT INFORMATION
  Report Type: Spontaneous
  Country: US (occurrence: US)
  Receive Date: 20140821
  Receipt Date: 20140821
  Transmission Date: 20150326
  Serious: No
  Sender: FDA-Public Use
  Company Number: US-009507513-1408USA012038

PATIENT
  Age: 18 Year
  Sex: Female
  Weight: 77 kg

DRUGS (2)
  1. NEXPLANON [Suspect]
     Active Substance: ETONOGESTREL
     Indication: CONTRACEPTION
     Dosage: UNK
     Route: 059
     Dates: start: 20130413
  2. NEXPLANON [Suspect]
     Active Substance: ETONOGESTREL
     Indication: MENSTRUATION IRREGULAR

REACTIONS (4)
  - Breast tenderness [Unknown]
  - Drug administration error [Unknown]
  - Amenorrhoea [Unknown]
  - Breast pain [Unknown]

NARRATIVE: CASE EVENT DATE: 201306
